FAERS Safety Report 8371287-8 (Version None)
Quarter: 2012Q2

REPORT INFORMATION
  Report Type: 
  Country: None (occurrence: None)
  Receive Date: 20120518
  Receipt Date: 20120511
  Transmission Date: 20120825
  Serious: Yes (Hospitalization, Other)
  Sender: FDA-Public Use
  Company Number: ES-B.I. PHARMACEUTICALS,INC./RIDGEFIELD-2012-ES-00206ES

PATIENT
  Age: 78 Year
  Sex: Female

DRUGS (7)
  1. ALDACTONE [Concomitant]
  2. DURAGESIC-100 [Concomitant]
  3. FUROSEMIDE [Concomitant]
  4. ATORVASTATIN CALCIUM [Concomitant]
  5. PRADAXA [Suspect]
     Indication: ATRIAL FIBRILLATION
     Dosage: 220 MG
     Route: 048
     Dates: start: 20110501, end: 20111225
  6. ULCERAL [Concomitant]
  7. ALLOPURINOL [Concomitant]

REACTIONS (4)
  - RENAL FAILURE [None]
  - GASTROINTESTINAL HAEMORRHAGE [None]
  - ATRIOVENTRICULAR BLOCK [None]
  - HYPERKALAEMIA [None]
